FAERS Safety Report 21231374 (Version 1)
Quarter: 2022Q3

REPORT INFORMATION
  Report Type: Spontaneous
  Country: CN (occurrence: CN)
  Receive Date: 20220819
  Receipt Date: 20220819
  Transmission Date: 20221026
  Serious: Yes (Other)
  Sender: FDA-Public Use
  Company Number: None

PATIENT
  Age: 81 Year
  Sex: Male
  Weight: 45 kg

DRUGS (4)
  1. CYCLOPHOSPHAMIDE [Suspect]
     Active Substance: CYCLOPHOSPHAMIDE
     Indication: Diffuse large B-cell lymphoma
     Dosage: 0. 60, 000 G ONCE DAILY, CYCLOPHOSPHAMIDE 0.6G + 0.9% NACL20ML
     Route: 041
     Dates: start: 20220619, end: 20220619
  2. SODIUM CHLORIDE [Suspect]
     Active Substance: SODIUM CHLORIDE
     Indication: Medication dilution
     Dosage: 20 ML, QD, CYCLOPHOSPHAMIDE 0.6G + 0.9% NACL20ML
     Route: 041
     Dates: start: 20220619, end: 20220619
  3. SODIUM CHLORIDE [Suspect]
     Active Substance: SODIUM CHLORIDE
     Dosage: 25ML, QD,  VINDESINE 3MG + 0.9% NACL250 ML
     Route: 041
     Dates: start: 20220619, end: 20220619
  4. VINDESINE SULFATE [Suspect]
     Active Substance: VINDESINE SULFATE
     Indication: Diffuse large B-cell lymphoma
     Dosage: 3.000000MG ONCE DAILY, VINDESINE 3MG + 0.9% NACL250 ML
     Route: 041
     Dates: start: 20220619, end: 20220619

REACTIONS (1)
  - Neutrophil count decreased [Recovering/Resolving]

NARRATIVE: CASE EVENT DATE: 20220626
